FAERS Safety Report 9844827 (Version 1)
Quarter: 2014Q1

REPORT INFORMATION
  Report Type: Spontaneous
  Country: GB (occurrence: None)
  Receive Date: 20140122
  Receipt Date: 20140122
  Transmission Date: 20141002
  Serious: Yes (Other)
  Sender: FDA-Public Use
  Company Number: AUR-APL-2014-00289

PATIENT
  Age: 40 Year
  Sex: Female
  Weight: 47.8 kg

DRUGS (2)
  1. AMOXICILLIN [Suspect]
     Indication: PRODUCT USED FOR UNKNOWN INDICATION
     Dates: start: 20131231
  2. ERYTHROMYCIN ( ERYTHROMYCIN) [Concomitant]

REACTIONS (2)
  - Swelling face [None]
  - Lip swelling [None]
